FAERS Safety Report 19944464 (Version 1)
Quarter: 2021Q4

REPORT INFORMATION
  Report Type: Spontaneous
  Country: US (occurrence: US)
  Receive Date: 20211012
  Receipt Date: 20211012
  Transmission Date: 20220303
  Serious: No
  Sender: FDA-Public Use
  Company Number: US-MYOVANT SCIENCES GMBH-2021MYSCI0700230

PATIENT
  Sex: Male

DRUGS (16)
  1. ORGOVYX [Suspect]
     Active Substance: RELUGOLIX
     Indication: Prostate cancer
     Dosage: 120 MILLIGRAM, QD
     Route: 048
     Dates: start: 202105
  2. NALTREXONE [Concomitant]
     Active Substance: NALTREXONE
     Indication: Immune system disorder
     Dosage: 4.5 MILLIGRAM, QD
     Route: 048
  3. ASPIRIN [Concomitant]
     Active Substance: ASPIRIN
     Indication: Cardiovascular disorder
     Dosage: 81 MILLIGRAM, QD
     Route: 048
  4. DILTIAZEM HYDROCHLORIDE [Concomitant]
     Active Substance: DILTIAZEM HYDROCHLORIDE
     Indication: Blood pressure management
     Dosage: 240 MILLIGRAM, QD
     Route: 048
  5. OMEPRAZOLE [Concomitant]
     Active Substance: OMEPRAZOLE
     Indication: Gastrooesophageal reflux disease
     Dosage: 20 MILLIGRAM, QD
     Route: 048
  6. FUROSEMIDE [Concomitant]
     Active Substance: FUROSEMIDE
     Indication: Fluid retention
     Dosage: 20 MILLIGRAM, QD
     Route: 048
  7. ATORVASTATIN [Concomitant]
     Active Substance: ATORVASTATIN
     Indication: Blood cholesterol
     Dosage: 40 MILLIGRAM
     Route: 048
  8. PREDNISOLONE ACETATE [Concomitant]
     Active Substance: PREDNISOLONE ACETATE
     Indication: Corneal transplant
     Dosage: 1 DROP, QD
     Route: 031
  9. FISH OIL [Concomitant]
     Active Substance: FISH OIL
     Indication: Corneal transplant
     Dosage: 1000 MILLIGRAM, QD
     Route: 048
  10. MINERALS\VITAMINS [Concomitant]
     Active Substance: MINERALS\VITAMINS
     Indication: Corneal transplant
     Dosage: UNK, QD
     Route: 048
  11. CITRACAL PLUS D [Concomitant]
     Indication: Corneal transplant
     Dosage: UNK, QD
     Route: 048
  12. POTASSIUM DICHROMATE [Concomitant]
     Active Substance: POTASSIUM DICHROMATE
     Indication: Corneal transplant
     Dosage: UNK, QD
     Route: 048
  13. VITAMIN C [Concomitant]
     Active Substance: ASCORBIC ACID
     Indication: Corneal transplant
     Dosage: 1000 MILLIGRAM, QD
     Route: 048
  14. VITAMIN D3 [Concomitant]
     Active Substance: CHOLECALCIFEROL
     Indication: Corneal transplant
     Dosage: 2000 INTERNATIONAL UNIT, QD
     Route: 048
  15. ISOSORBIDE MONONITRATE [Concomitant]
     Active Substance: ISOSORBIDE MONONITRATE
     Indication: Dyspnoea
     Dosage: UNK, QD
     Route: 048
  16. FLAXSEED OIL                       /01649403/ [Concomitant]
     Indication: Corneal transplant
     Dosage: 750 MILLIGRAM, BID
     Route: 048

REACTIONS (1)
  - Anaemia [Unknown]
